FAERS Safety Report 16971238 (Version 1)
Quarter: 2019Q4

REPORT INFORMATION
  Report Type: Spontaneous
  Country: US (occurrence: US)
  Receive Date: 20191028
  Receipt Date: 20191028
  Transmission Date: 20200122
  Serious: Yes (Hospitalization)
  Sender: FDA-Public Use
  Company Number: None

PATIENT
  Age: 38 Year
  Sex: Male

DRUGS (7)
  1. ADCIRCA [Suspect]
     Active Substance: TADALAFIL
     Route: 048
     Dates: start: 20181003
  2. K-TAB 10 MEQ [Concomitant]
     Dates: start: 20160824
  3. FUROSEMIDE. [Concomitant]
     Active Substance: FUROSEMIDE
     Dates: start: 20160824
  4. SPIRONALACTONE 50MG [Concomitant]
     Dates: start: 20160824
  5. METOPROLOL 25 [Concomitant]
     Dates: start: 20160824
  6. METOPROLOL 50 ER [Concomitant]
     Dates: start: 20190523
  7. OPSUMIT [Concomitant]
     Active Substance: MACITENTAN
     Dates: start: 20181003

REACTIONS (3)
  - Fluid retention [None]
  - Insurance issue [None]
  - Product dose omission [None]

NARRATIVE: CASE EVENT DATE: 20191025
